FAERS Safety Report 7612135-0 (Version None)
Quarter: 2011Q3

REPORT INFORMATION
  Report Type: 
  Country: None (occurrence: None)
  Receive Date: 20110715
  Receipt Date: 20110704
  Transmission Date: 20111222
  Serious: Yes (Other)
  Sender: FDA-Public Use
  Company Number: US-GENENTECH-284614

PATIENT

DRUGS (2)
  1. BORTEZOMIB [Suspect]
     Indication: NON-HODGKIN'S LYMPHOMA
     Route: 065
  2. RITUXIMAB [Suspect]
     Indication: NON-HODGKIN'S LYMPHOMA
     Dosage: 375 MG/M2, DAY1+8/Q3W
     Route: 065

REACTIONS (16)
  - ANAEMIA [None]
  - MYOSITIS [None]
  - PERIPHERAL SENSORY NEUROPATHY [None]
  - NEUTROPENIA [None]
  - ILEUS [None]
  - DIARRHOEA [None]
  - VOMITING [None]
  - NEOPLASM MALIGNANT [None]
  - THROMBOCYTOPENIA [None]
  - FEBRILE NEUTROPENIA [None]
  - RASH [None]
  - PERIPHERAL MOTOR NEUROPATHY [None]
  - FATIGUE [None]
  - ORTHOSTATIC HYPOTENSION [None]
  - DECREASED APPETITE [None]
  - NAUSEA [None]
